FAERS Safety Report 4851527-X (Version None)
Quarter: 2005Q4

REPORT INFORMATION
  Report Type: 
  Country: None (occurrence: None)
  Receive Date: 20051212
  Receipt Date: 20051115
  Transmission Date: 20060501
  Serious: Yes (Hospitalization)
  Sender: FDA-Public Use
  Company Number: US-ROCHE-425188

PATIENT
  Age: 44 Year
  Sex: Male
  Weight: 68 kg

DRUGS (2)
  1. PEGASYS [Suspect]
     Dosage: ROUTE REPORTED AS INJECTABLE.
     Route: 030
     Dates: start: 20051111, end: 20051111
  2. NOVOLIN [Concomitant]

REACTIONS (2)
  - CATATONIA [None]
  - NEUTROPENIA [None]
